FAERS Safety Report 21695774 (Version 1)
Quarter: 2022Q4

REPORT INFORMATION
  Report Type: Report from Study
  Country: US (occurrence: US)
  Receive Date: 20221207
  Receipt Date: 20221207
  Transmission Date: 20230113
  Serious: No
  Sender: FDA-Public Use
  Company Number: US-ABBVIE-4189486

PATIENT
  Sex: Female

DRUGS (1)
  1. HUMIRA [Suspect]
     Active Substance: ADALIMUMAB
     Indication: Spondylitis
     Dosage: 40 MG
     Route: 058

REACTIONS (4)
  - Injection site reaction [Unknown]
  - Off label use [Unknown]
  - Injection site bruising [Unknown]
  - Device issue [Not Recovered/Not Resolved]
